FAERS Safety Report 10039321 (Version 3)
Quarter: 2014Q3

REPORT INFORMATION
  Report Type: Spontaneous
  Country: US (occurrence: None)
  Receive Date: 20140318
  Receipt Date: 20140917
  Transmission Date: 20150326
  Serious: No
  Sender: FDA-Public Use
  Company Number: 2013CT000118

PATIENT
  Age: 41 Year
  Sex: Female

DRUGS (5)
  1. NADOLOL. [Concomitant]
     Active Substance: NADOLOL
  2. VITAMIN D /00107901/ [Concomitant]
     Active Substance: ERGOCALCIFEROL
  3. KORLYM [Suspect]
     Active Substance: MIFEPRISTONE
     Indication: PITUITARY-DEPENDENT CUSHING^S SYNDROME
     Route: 048
     Dates: start: 20131110
  4. LEVOTHYROXINE [Concomitant]
     Active Substance: LEVOTHYROXINE
  5. POTASSIUM [Concomitant]
     Active Substance: POTASSIUM

REACTIONS (10)
  - Middle insomnia [None]
  - Dyspepsia [None]
  - Fatigue [None]
  - Abdominal pain upper [None]
  - Hot flush [None]
  - Asthenia [None]
  - Hypersomnia [None]
  - Nausea [None]
  - Sinusitis [None]
  - Dizziness [None]

NARRATIVE: CASE EVENT DATE: 20131110
